FAERS Safety Report 9562861 (Version 1)
Quarter: 2013Q3

REPORT INFORMATION
  Report Type: Spontaneous
  Country: IN (occurrence: IN)
  Receive Date: 20130927
  Receipt Date: 20130927
  Transmission Date: 20140515
  Serious: Yes (Other)
  Sender: FDA-Public Use
  Company Number: IN-BAXTER-2013BAX037847

PATIENT
  Sex: 0

DRUGS (1)
  1. DEXTRAN 40 INJECTION IP [Suspect]
     Indication: THROMBOSIS PROPHYLAXIS
     Dosage: 125 ML/HOUR DAILY FOR 4 DAYS
     Route: 042

REACTIONS (2)
  - Atelectasis [Unknown]
  - Post procedural complication [Unknown]
